FAERS Safety Report 6039989-6 (Version None)
Quarter: 2009Q1

REPORT INFORMATION
  Report Type: 
  Country: None (occurrence: None)
  Receive Date: 20090116
  Receipt Date: 20071108
  Transmission Date: 20090719
  Serious: No
  Sender: FDA-Public Use
  Company Number: US-BRISTOL-MYERS SQUIBB COMPANY-13975834

PATIENT
  Age: 67 Year
  Sex: Female

DRUGS (10)
  1. ABILIFY [Suspect]
     Indication: BIPOLAR DISORDER
     Dates: end: 20070801
  2. LITHIUM CARBONATE [Suspect]
  3. WELLBUTRIN XL [Suspect]
     Indication: BIPOLAR DISORDER
     Route: 048
     Dates: start: 20070201, end: 20071024
  4. BUPROPION HCL [Concomitant]
     Dates: start: 20060101, end: 20070201
  5. SYNTHROID [Concomitant]
  6. LISINOPRIL [Concomitant]
  7. FAMOTIDINE [Concomitant]
  8. FUROSEMIDE [Concomitant]
  9. POTASSIUM CHLORIDE [Concomitant]
  10. OESTRADIOL [Concomitant]

REACTIONS (2)
  - DRUG INEFFECTIVE [None]
  - PARANOIA [None]
